FAERS Safety Report 9447995 (Version 1)
Quarter: 2013Q3

REPORT INFORMATION
  Report Type: Spontaneous
  Country: GR (occurrence: GR)
  Receive Date: 20130808
  Receipt Date: 20130808
  Transmission Date: 20140515
  Serious: Yes (Other)
  Sender: FDA-Public Use
  Company Number: PHHY2013GR085023

PATIENT
  Age: 56 Year
  Sex: Male

DRUGS (2)
  1. VOLTAREN [Suspect]
     Indication: PAIN
     Dosage: 75 MG, QD
     Route: 048
     Dates: start: 20130804
  2. PLAVIX [Concomitant]
     Dosage: UNK UKN, UNK

REACTIONS (4)
  - Swollen tongue [Unknown]
  - Dysphagia [Unknown]
  - Face oedema [Unknown]
  - Oropharyngeal pain [Unknown]
